FAERS Safety Report 7773132-8 (Version None)
Quarter: 2011Q3

REPORT INFORMATION
  Report Type: 
  Country: None (occurrence: None)
  Receive Date: 20110922
  Receipt Date: 20110209
  Transmission Date: 20111222
  Serious: No
  Sender: FDA-Public Use
  Company Number: US-ASTRAZENECA-2008UW21451

PATIENT
  Age: 29 Year
  Sex: Male
  Weight: 149.7 kg

DRUGS (14)
  1. ZOLOFT [Concomitant]
     Dates: start: 20030101, end: 20050101
  2. SERTRALINE HYDROCHLORIDE [Concomitant]
  3. SEROQUEL [Suspect]
     Route: 048
     Dates: start: 20031024
  4. SEROQUEL [Suspect]
     Indication: AFFECTIVE DISORDER
     Dosage: 25 TO 1200 MG
     Route: 048
     Dates: start: 20031001, end: 20100801
  5. SEROQUEL [Suspect]
     Indication: SLEEP DISORDER
     Dosage: 25 TO 1200 MG
     Route: 048
     Dates: start: 20031001, end: 20100801
  6. CLONAZEPAM [Concomitant]
  7. SEROQUEL [Suspect]
     Route: 048
     Dates: start: 20031024
  8. LAMICTAL [Concomitant]
  9. LAMOTRIGINE [Concomitant]
  10. SEROQUEL [Suspect]
     Route: 048
     Dates: start: 20031024
  11. ZOLOFT [Concomitant]
  12. GEODON [Concomitant]
  13. SEROQUEL [Suspect]
     Indication: PSYCHOTIC DISORDER
     Dosage: 25 TO 1200 MG
     Route: 048
     Dates: start: 20031001, end: 20100801
  14. SONATA [Concomitant]
     Indication: INSOMNIA
     Dosage: 10 OR 20 MG QHS PRN

REACTIONS (7)
  - WEIGHT INCREASED [None]
  - TYPE 2 DIABETES MELLITUS [None]
  - ESSENTIAL HYPERTENSION [None]
  - OBESITY [None]
  - BLOOD CHOLESTEROL INCREASED [None]
  - HYPERLIPIDAEMIA [None]
  - BLOOD TRIGLYCERIDES INCREASED [None]
